FAERS Safety Report 21075312 (Version 2)
Quarter: 2022Q3

REPORT INFORMATION
  Report Type: Report from Study
  Country: US (occurrence: US)
  Receive Date: 20220713
  Receipt Date: 20220925
  Transmission Date: 20221027
  Serious: No
  Sender: FDA-Public Use
  Company Number: US-BRISTOL-MYERS SQUIBB COMPANY-2022-069793

PATIENT
  Age: 63 Year
  Sex: Male
  Weight: 74.8 kg

DRUGS (6)
  1. NIVOLUMAB [Suspect]
     Active Substance: NIVOLUMAB
     Indication: Metastatic renal cell carcinoma
     Dosage: CYCLE-21 DAYS, DAY 1
     Route: 042
     Dates: start: 20220418
  2. NIVOLUMAB [Suspect]
     Active Substance: NIVOLUMAB
     Route: 042
     Dates: start: 20220509, end: 20220509
  3. NIVOLUMAB [Suspect]
     Active Substance: NIVOLUMAB
     Route: 042
     Dates: end: 20220531
  4. IPILIMUMAB [Suspect]
     Active Substance: IPILIMUMAB
     Indication: Metastatic renal cell carcinoma
     Dosage: CYCLE-21 DAYS, DAY 1
     Route: 042
     Dates: start: 20220418
  5. IPILIMUMAB [Suspect]
     Active Substance: IPILIMUMAB
     Route: 042
     Dates: start: 20220509, end: 20220509
  6. IPILIMUMAB [Suspect]
     Active Substance: IPILIMUMAB
     Route: 042
     Dates: end: 20220531

REACTIONS (1)
  - Blood creatine phosphokinase increased [Recovered/Resolved with Sequelae]

NARRATIVE: CASE EVENT DATE: 20220606
